FAERS Safety Report 7428823-5 (Version None)
Quarter: 2011Q2

REPORT INFORMATION
  Report Type: 
  Country: None (occurrence: None)
  Receive Date: 20110421
  Receipt Date: 20110415
  Transmission Date: 20111010
  Serious: Yes (Other)
  Sender: FDA-Public Use
  Company Number: DE-PFIZER INC-2011084505

PATIENT
  Sex: Male

DRUGS (1)
  1. VIAGRA [Suspect]
     Dosage: UNK, ^REGULARLY^
     Dates: start: 20030101, end: 20050101

REACTIONS (1)
  - POSTURAL ORTHOSTATIC TACHYCARDIA SYNDROME [None]
